FAERS Safety Report 14571255 (Version 1)
Quarter: 2018Q1

REPORT INFORMATION
  Report Type: Report from Study
  Country: TR (occurrence: TR)
  Receive Date: 20180226
  Receipt Date: 20180226
  Transmission Date: 20180509
  Serious: Yes (Death, Hospitalization, Other)
  Sender: FDA-Public Use
  Company Number: PHHY2018TR005893

PATIENT
  Age: 44 Year
  Sex: Female
  Weight: 64.2 kg

DRUGS (2)
  1. LEE011 [Suspect]
     Active Substance: RIBOCICLIB
     Indication: BREAST CANCER METASTATIC
     Dosage: 600 MG, UNK
     Route: 048
     Dates: start: 20171020, end: 20171203
  2. FULVESTRANT. [Concomitant]
     Active Substance: FULVESTRANT
     Indication: BREAST CANCER
     Dosage: 500 MG, UNK
     Route: 065
     Dates: start: 20170716, end: 20171218

REACTIONS (10)
  - Motor dysfunction [Fatal]
  - Metastases to meninges [Unknown]
  - Thrombocytopenia [Fatal]
  - Thrombocytopenia [Recovered/Resolved]
  - Neutropenia [Recovered/Resolved]
  - Malignant neoplasm progression [Fatal]
  - Respiratory failure [Fatal]
  - Dysarthria [Fatal]
  - Breast cancer metastatic [Fatal]
  - Headache [Unknown]

NARRATIVE: CASE EVENT DATE: 20171103
